FAERS Safety Report 10156374 (Version 2)
Quarter: 2014Q3

REPORT INFORMATION
  Report Type: Spontaneous
  Country: US (occurrence: US)
  Receive Date: 20140507
  Receipt Date: 20140722
  Transmission Date: 20150326
  Serious: Yes (Other)
  Sender: FDA-Public Use
  Company Number: US-BRISTOL-MYERS SQUIBB COMPANY-20688008

PATIENT
  Age: 54 Year
  Sex: Female
  Weight: 95.69 kg

DRUGS (5)
  1. GLIPIZIDE. [Concomitant]
     Active Substance: GLIPIZIDE
  2. BYETTA [Suspect]
     Active Substance: EXENATIDE
     Indication: TYPE 2 DIABETES MELLITUS
     Dosage: INTUPD: 2013 AND STARTED AGAIN?10 MCG?ONGOING
     Dates: start: 2008
  3. METFORMIN HCL [Suspect]
     Active Substance: METFORMIN HYDROCHLORIDE
  4. LEVEMIR [Concomitant]
     Active Substance: INSULIN DETEMIR
  5. INVOKANA [Concomitant]
     Active Substance: CANAGLIFLOZIN
     Indication: TYPE 2 DIABETES MELLITUS

REACTIONS (6)
  - Weight decreased [Unknown]
  - Drug dose omission [Unknown]
  - Nausea [Unknown]
  - Blood glucose fluctuation [Unknown]
  - Back disorder [Unknown]
  - Decreased appetite [Unknown]
